FAERS Safety Report 8452094-4 (Version None)
Quarter: 2012Q2

REPORT INFORMATION
  Report Type: 
  Country: None (occurrence: None)
  Receive Date: 20120620
  Receipt Date: 20120330
  Transmission Date: 20120825
  Serious: No
  Sender: FDA-Public Use
  Company Number: US-VERTEX PHARMACEUTICALS INC.-AE-2012-004613

PATIENT
  Sex: Female
  Weight: 70.37 kg

DRUGS (3)
  1. INCIVEK [Suspect]
     Indication: HEPATITIS C
     Route: 048
     Dates: start: 20120321
  2. RIBAVIRIN [Concomitant]
     Indication: HEPATITIS C
     Dates: start: 20120321
  3. PEGASYS [Concomitant]
     Indication: HEPATITIS C
     Route: 058
     Dates: start: 20120321

REACTIONS (9)
  - PYREXIA [None]
  - RECTAL HAEMORRHAGE [None]
  - RASH PRURITIC [None]
  - ORAL HERPES [None]
  - CHILLS [None]
  - MIGRAINE [None]
  - VOMITING [None]
  - ANORECTAL DISCOMFORT [None]
  - ANAL PRURITUS [None]
